FAERS Safety Report 25842133 (Version 1)
Quarter: 2025Q3

REPORT INFORMATION
  Report Type: Spontaneous
  Country: US (occurrence: None)
  Receive Date: 20250924
  Receipt Date: 20250924
  Transmission Date: 20251021
  Serious: Yes (Hospitalization)
  Sender: FDA-CTU
  Company Number: None

PATIENT
  Age: 42 Year
  Sex: Female
  Weight: 102 kg

DRUGS (2)
  1. YAZ [Suspect]
     Active Substance: DROSPIRENONE\ETHINYL ESTRADIOL
     Indication: Contraception
     Dosage: FREQUENCY : DAILY;?
     Route: 048
     Dates: start: 20190924, end: 20250919
  2. fexofenadine 60 mg [Concomitant]
     Dates: start: 20250908

REACTIONS (2)
  - Deep vein thrombosis [None]
  - Fibula fracture [None]

NARRATIVE: CASE EVENT DATE: 20250918
